FAERS Safety Report 7480922-8 (Version None)
Quarter: 2011Q2

REPORT INFORMATION
  Report Type: 
  Country: None (occurrence: None)
  Receive Date: 20110506
  Receipt Date: 20110423
  Transmission Date: 20111010
  Serious: Yes (Hospitalization)
  Sender: FDA-Public Use
  Company Number: 031914

PATIENT
  Sex: Female

DRUGS (6)
  1. LANSOX [Concomitant]
  2. MEMANTINE HYDROCHLORIDE [Concomitant]
  3. ASPIRIN [Concomitant]
  4. EUTIROX [Concomitant]
  5. FRISIUM (FRISIUM) (NOT SPECIFIED) [Suspect]
     Indication: EPILEPSY
     Dosage: 10 MG, ORAL
     Route: 048
     Dates: start: 20101205, end: 20110318
  6. KEPPRA [Suspect]
     Indication: EPILEPSY
     Dosage: 3000 MG, 30  TABLETS FOR ORAL USE, ORAL
     Route: 048
     Dates: start: 20101102, end: 20110318

REACTIONS (2)
  - AUTONOMIC NEUROPATHY [None]
  - PRESYNCOPE [None]
